FAERS Safety Report 23235940 (Version 2)
Quarter: 2023Q4

REPORT INFORMATION
  Report Type: Report from Study
  Country: NL (occurrence: NL)
  Receive Date: 20231128
  Receipt Date: 20231205
  Transmission Date: 20240110
  Serious: Yes (Hospitalization)
  Sender: FDA-Public Use
  Company Number: NL-002147023-NVSC2023NL221975

PATIENT
  Age: 65 Year
  Sex: Female
  Weight: 53.3 kg

DRUGS (9)
  1. TAFINLAR [Suspect]
     Active Substance: DABRAFENIB MESYLATE
     Indication: Colorectal cancer
     Dosage: 150 MG, QD
     Route: 048
     Dates: start: 20221026, end: 20231010
  2. RINETERKIB [Suspect]
     Active Substance: RINETERKIB
     Indication: Colorectal cancer
     Dosage: 100 MG, QD
     Route: 048
     Dates: start: 20221026, end: 20231010
  3. TISLELIZUMAB [Suspect]
     Active Substance: TISLELIZUMAB
     Indication: Colorectal cancer
     Dosage: 300 MG, Q4W
     Route: 042
     Dates: start: 20221026, end: 20230913
  4. VASELINE CETOMACROGOL CREAM [Concomitant]
     Indication: Metastasis
     Dosage: UNK
     Route: 065
     Dates: start: 20221017
  5. CLEMASTINE [Concomitant]
     Active Substance: CLEMASTINE
     Indication: Premedication
     Dosage: UNK
     Route: 065
     Dates: start: 20221221, end: 20231012
  6. ACETAMINOPHEN [Concomitant]
     Active Substance: ACETAMINOPHEN
     Indication: Premedication
     Dosage: UNK
     Route: 065
     Dates: start: 20221221
  7. FERROUS FUMARATE [Concomitant]
     Active Substance: FERROUS FUMARATE
     Indication: Anaemia
     Dosage: UNK
     Route: 065
     Dates: start: 20230310
  8. APIXABAN [Concomitant]
     Active Substance: APIXABAN
     Indication: Thrombosis prophylaxis
     Dosage: UNK
     Route: 065
     Dates: start: 20230708, end: 20231012
  9. PSYLLIUM HUSK [Concomitant]
     Active Substance: PSYLLIUM HUSK
     Indication: Constipation prophylaxis
     Dosage: UNK
     Route: 065
     Dates: start: 20230904

REACTIONS (1)
  - Chronic kidney disease [Not Recovered/Not Resolved]

NARRATIVE: CASE EVENT DATE: 20231011
